FAERS Safety Report 4819265-7 (Version None)
Quarter: 2005Q4

REPORT INFORMATION
  Report Type: 
  Country: None (occurrence: None)
  Receive Date: 20051103
  Receipt Date: 20051028
  Transmission Date: 20060501
  Serious: Yes (Hospitalization)
  Sender: FDA-Public Use
  Company Number: GB-BRISTOL-MYERS SQUIBB COMPANY-13161096

PATIENT
  Sex: Female

DRUGS (2)
  1. SUSTIVA [Suspect]
     Route: 048
  2. TRUVADA [Concomitant]

REACTIONS (1)
  - HYPERSENSITIVITY [None]
